FAERS Safety Report 10465981 (Version 1)
Quarter: 2014Q3

REPORT INFORMATION
  Report Type: Spontaneous
  Country: DE (occurrence: DE)
  Receive Date: 20140922
  Receipt Date: 20140922
  Transmission Date: 20150326
  Serious: Yes (Other)
  Sender: FDA-Public Use
  Company Number: DE-AUROBINDO-AUR-APL-2014-09922

PATIENT
  Age: 59 Year
  Sex: Male
  Weight: 80 kg

DRUGS (1)
  1. SIMVASTATIN 20MG [Suspect]
     Active Substance: SIMVASTATIN
     Indication: PROPHYLAXIS
     Dosage: 20 MG, UNK
     Route: 048
     Dates: start: 20140826, end: 20140828

REACTIONS (1)
  - Renal failure acute [Recovered/Resolved]

NARRATIVE: CASE EVENT DATE: 20140827
